FAERS Safety Report 24904336 (Version 1)
Quarter: 2025Q1

REPORT INFORMATION
  Report Type: Spontaneous
  Country: JP (occurrence: JP)
  Receive Date: 20250130
  Receipt Date: 20250130
  Transmission Date: 20250408
  Serious: Yes (Death)
  Sender: MYLAN
  Company Number: JP-MYLANLABS-2025M1007258

PATIENT
  Age: 3 Year
  Sex: Female

DRUGS (4)
  1. CELECOXIB [Suspect]
     Active Substance: CELECOXIB
     Indication: Neuroblastoma
     Route: 065
  2. FENOFIBRATE [Suspect]
     Active Substance: FENOFIBRATE
     Indication: Neuroblastoma
     Route: 065
  3. ETOPOSIDE [Suspect]
     Active Substance: ETOPOSIDE
     Indication: Neuroblastoma
     Route: 048
  4. BEVACIZUMAB [Suspect]
     Active Substance: BEVACIZUMAB
     Indication: Neuroblastoma
     Route: 065

REACTIONS (3)
  - Disease progression [Fatal]
  - Drug ineffective for unapproved indication [Fatal]
  - Off label use [Unknown]
